FAERS Safety Report 8361642-4 (Version None)
Quarter: 2012Q2

REPORT INFORMATION
  Report Type: 
  Country: None (occurrence: None)
  Receive Date: 20120515
  Receipt Date: 20120430
  Transmission Date: 20120825
  Serious: Yes (Hospitalization, Other)
  Sender: FDA-Public Use
  Company Number: TN-WATSON-2012-08102

PATIENT
  Age: 45 Year
  Sex: Female

DRUGS (2)
  1. NAPROXEN SODIUM [Suspect]
     Indication: ARTHRALGIA
     Dosage: 550 MG, BID
     Route: 048
     Dates: start: 20100901, end: 20101020
  2. NAPROXEN SODIUM [Suspect]
     Dosage: 550 MG, DAILY
     Route: 048
     Dates: start: 20000101, end: 20100901

REACTIONS (1)
  - LEUKOCYTOCLASTIC VASCULITIS [None]
